FAERS Safety Report 25374026 (Version 1)
Quarter: 2025Q2

REPORT INFORMATION
  Report Type: Spontaneous
  Country: US (occurrence: None)
  Receive Date: 20250528
  Receipt Date: 20250528
  Transmission Date: 20250717
  Serious: Yes (Other)
  Sender: FDA-CTU
  Company Number: None

PATIENT
  Age: 68 Year
  Sex: Male

DRUGS (2)
  1. ERLEADA [Suspect]
     Active Substance: APALUTAMIDE
     Dosage: FREQUENCY : DAILY;?
     Route: 048
  2. ERLEADA [Concomitant]
     Active Substance: APALUTAMIDE

REACTIONS (5)
  - Affective disorder [None]
  - Intrusive thoughts [None]
  - Abdominal distension [None]
  - Flatulence [None]
  - Gastrointestinal disorder [None]

NARRATIVE: CASE EVENT DATE: 20250528
